FAERS Safety Report 4285867-2 (Version None)
Quarter: 2004Q1

REPORT INFORMATION
  Report Type: 
  Country: None (occurrence: None)
  Receive Date: 20040203
  Receipt Date: 20040120
  Transmission Date: 20041129
  Serious: Yes (Death)
  Sender: FDA-Public Use
  Company Number: 2004IM000107

PATIENT
  Age: 55 Year
  Sex: Male

DRUGS (2)
  1. ACTIMMUNE [Suspect]
     Indication: INTERSTITIAL LUNG DISEASE
     Dosage: 200 UG/TIW/SUBCUTANEOUS
     Route: 058
     Dates: start: 20000301, end: 20000601
  2. PREDNISOLONE [Concomitant]

REACTIONS (2)
  - PULMONARY FIBROSIS [None]
  - RIGHT VENTRICULAR FAILURE [None]
